FAERS Safety Report 13820737 (Version 1)
Quarter: 2017Q3

REPORT INFORMATION
  Report Type: Report from Study
  Country: US (occurrence: US)
  Receive Date: 20170801
  Receipt Date: 20170801
  Transmission Date: 20171127
  Serious: No
  Sender: FDA-Public Use
  Company Number: US-AMGEN-USASL2017114841

PATIENT
  Sex: Female

DRUGS (1)
  1. ENBREL [Suspect]
     Active Substance: ETANERCEPT
     Indication: PRODUCT USED FOR UNKNOWN INDICATION
     Dosage: 50 MG, QWK
     Route: 058

REACTIONS (7)
  - Joint swelling [Unknown]
  - Drug effect incomplete [Unknown]
  - Peripheral swelling [Unknown]
  - Pain [Unknown]
  - Fatigue [Unknown]
  - Arthralgia [Unknown]
  - Swelling [Unknown]

NARRATIVE: CASE EVENT DATE: 2017
